FAERS Safety Report 8261733-2 (Version None)
Quarter: 2012Q2

REPORT INFORMATION
  Report Type: 
  Country: None (occurrence: None)
  Receive Date: 20120405
  Receipt Date: 20120328
  Transmission Date: 20120825
  Serious: Yes (Other)
  Sender: FDA-Public Use
  Company Number: US-BAYER-2012-012482

PATIENT
  Age: 34 Year
  Sex: Female
  Weight: 95 kg

DRUGS (11)
  1. YAZ [Suspect]
     Dosage: UNK
     Dates: start: 20080801, end: 20100101
  2. SYMBICORT [Concomitant]
     Indication: ASTHMA
     Dosage: 2 PUFF(S), BID
     Route: 055
     Dates: start: 20070101
  3. ASCORBIC ACID [Concomitant]
     Indication: IMMUNE ENHANCEMENT THERAPY
     Dosage: UNK UNK, QD
     Route: 048
  4. TRICOR [Concomitant]
     Indication: BLOOD CHOLESTEROL INCREASED
     Dosage: UNK UNK, QD
     Route: 048
     Dates: start: 20090101, end: 20110101
  5. IBUPROFEN [Concomitant]
     Indication: PAIN
     Dosage: UNK UNK, PRN
     Route: 048
  6. ALBUTEROL [Concomitant]
     Indication: ASTHMA
     Dosage: UNK UNK, PRN
     Route: 055
     Dates: start: 20070101
  7. OMEPRAZOLE [Concomitant]
     Indication: GASTROOESOPHAGEAL REFLUX DISEASE
     Dosage: UNK UNK, QD
     Route: 048
     Dates: start: 20090101, end: 20110101
  8. PHENERGAN HCL [Concomitant]
     Indication: NAUSEA
     Dosage: UNK UNK, PRN
     Route: 048
     Dates: start: 20100121
  9. LOVAZA [Concomitant]
     Indication: BLOOD TRIGLYCERIDES ABNORMAL
     Dosage: UNK UNK, TID
     Route: 048
     Dates: start: 20090101, end: 20110101
  10. SINGULAIR [Concomitant]
     Indication: ASTHMA
     Dosage: UNK UNK, QD
     Route: 048
     Dates: start: 20090101, end: 20110101
  11. HYDROCODONE [Concomitant]
     Indication: PAIN
     Dosage: UNK UNK, PRN
     Route: 048
     Dates: start: 20090101, end: 20100101

REACTIONS (11)
  - ANXIETY [None]
  - FLATULENCE [None]
  - CONSTIPATION [None]
  - CHOLECYSTECTOMY [None]
  - ABDOMINAL DISTENSION [None]
  - EMOTIONAL DISTRESS [None]
  - SCAR [None]
  - CHOLECYSTITIS CHRONIC [None]
  - DEPRESSION [None]
  - DYSPEPSIA [None]
  - DIARRHOEA [None]
